FAERS Safety Report 15200140 (Version 1)
Quarter: 2018Q3

REPORT INFORMATION
  Report Type: Spontaneous
  Country: NO (occurrence: NO)
  Receive Date: 20180726
  Receipt Date: 20180726
  Transmission Date: 20181010
  Serious: Yes (Life-Threatening, Hospitalization, Disabling, Other)
  Sender: FDA-Public Use
  Company Number: NO-ASTRAZENECA-2018SE92978

PATIENT
  Age: 40 Year
  Sex: Male
  Weight: 76 kg

DRUGS (11)
  1. VITAMINS NOS [Concomitant]
     Active Substance: VITAMINS
  2. QUETIAPINE. [Suspect]
     Active Substance: QUETIAPINE
     Indication: INSOMNIA
     Dosage: 25 MG, EVERY 12 HOURS, NON?AZ (SANDOZ)
     Route: 065
     Dates: start: 20140414
  3. ZOPICLONE [Concomitant]
     Active Substance: ZOPICLONE
     Dates: start: 20020304, end: 20180705
  4. CIPRALEX [Suspect]
     Active Substance: ESCITALOPRAM OXALATE
     Indication: DEPRESSION
     Route: 065
     Dates: start: 20040406, end: 20100704
  5. CALCIGRAN FORTE SITRON [Suspect]
     Active Substance: CALCIUM CARBONATE\CHOLECALCIFEROL
     Indication: THYROIDECTOMY
     Route: 065
     Dates: start: 20130405
  6. CALCIUM [Concomitant]
     Active Substance: CALCIUM
  7. ETALPHA [Concomitant]
     Active Substance: ALFACALCIDOL
     Route: 048
     Dates: start: 20130406, end: 20180705
  8. CIPRALEX [Suspect]
     Active Substance: ESCITALOPRAM OXALATE
     Indication: DEPRESSION
     Dosage: INCREASED DOSE
     Route: 065
  9. QUETIAPINE. [Suspect]
     Active Substance: QUETIAPINE
     Indication: INSOMNIA
     Dosage: INCREASED DOSE
     Route: 065
  10. CALCIGRAN FORTE SITRON [Suspect]
     Active Substance: CALCIUM CARBONATE\CHOLECALCIFEROL
     Indication: THYROIDECTOMY
     Dosage: REDUCED DOSE
     Route: 065
  11. MULTIMINERALS [Concomitant]

REACTIONS (6)
  - Eye disorder [Unknown]
  - Palpitations [Unknown]
  - Myalgia [Unknown]
  - Dizziness [Unknown]
  - Tooth injury [Unknown]
  - Cardiac fibrillation [Unknown]

NARRATIVE: CASE EVENT DATE: 20110404
